FAERS Safety Report 24168608 (Version 4)
Quarter: 2024Q4

REPORT INFORMATION
  Report Type: Spontaneous
  Country: JP (occurrence: JP)
  Receive Date: 20240802
  Receipt Date: 20241004
  Transmission Date: 20250114
  Serious: Yes (Life-Threatening, Other)
  Sender: TAKEDA
  Company Number: JP-TAKEDA-2024TJP011480

PATIENT
  Age: 77 Year
  Sex: Female

DRUGS (3)
  1. ROZEREM [Suspect]
     Active Substance: RAMELTEON
     Indication: Product used for unknown indication
     Dosage: 8 MILLIGRAM
     Route: 048
  2. ROZEREM [Suspect]
     Active Substance: RAMELTEON
     Dosage: UNK
     Route: 050
  3. QUETIAPINE FUMARATE [Suspect]
     Active Substance: QUETIAPINE FUMARATE
     Indication: Product used for unknown indication
     Dosage: UNK
     Route: 050

REACTIONS (8)
  - Near death experience [Unknown]
  - Syncope [Unknown]
  - Cerebral ischaemia [Unknown]
  - Structural brain disorder [Unknown]
  - Arrhythmia [Unknown]
  - Altered state of consciousness [Unknown]
  - Circadian rhythm sleep disorder [Unknown]
  - Incorrect route of product administration [Unknown]
